FAERS Safety Report 9445206 (Version 4)
Quarter: 2013Q3

REPORT INFORMATION
  Report Type: Spontaneous
  Country: DE (occurrence: None)
  Receive Date: 20130802
  Receipt Date: 20130925
  Transmission Date: 20140515
  Serious: Yes (Hospitalization)
  Sender: FDA-Public Use
  Company Number: 1307-939

PATIENT
  Age: 85 Year
  Sex: Female

DRUGS (12)
  1. EYELEA (AFLIBERCEPT) (AFLIBERCEPT) [Suspect]
     Route: 031
     Dates: start: 20130625, end: 20130625
  2. MARCOUMAR (PHENPROCOUMON) [Concomitant]
  3. LASIX (FUROSEMIDE) [Concomitant]
  4. ALDACTONE (SPIRONOLACTONE) [Concomitant]
  5. SORTIS (ATORVASTATIN CALCIUM) [Concomitant]
  6. PANTOPRAZOLE [Concomitant]
  7. TEVETEN PLUS  (EMESTAR PLUS) [Concomitant]
  8. ZYPREXA (OLANZAPINE) [Concomitant]
  9. DONEPEZIL (DONEPEZIL) [Concomitant]
  10. BELOC ZOK (METOPROLOL SUCCINATE) [Concomitant]
  11. DEPOINT (GLYCERYL TRINITRATE) [Concomitant]
  12. LACRYVISC (CARBOMER) [Concomitant]

REACTIONS (4)
  - Hypertension [None]
  - Renal failure acute [None]
  - Prerenal failure [None]
  - Cardiac failure [None]
